FAERS Safety Report 17285597 (Version 1)
Quarter: 2020Q1

REPORT INFORMATION
  Report Type: Spontaneous
  Country: US (occurrence: US)
  Receive Date: 20200117
  Receipt Date: 20200117
  Transmission Date: 20200409
  Serious: No
  Sender: FDA-Public Use
  Company Number: US-NEUROCRINE BIOSCIENCES INC.-2020NBI00144

PATIENT
  Age: 61 Year
  Sex: Female

DRUGS (6)
  1. INGREZZA [Suspect]
     Active Substance: VALBENAZINE
  2. AMBIEN [Suspect]
     Active Substance: ZOLPIDEM TARTRATE
  3. TRAZODONE [Concomitant]
     Active Substance: TRAZODONE HYDROCHLORIDE
  4. INGREZZA [Suspect]
     Active Substance: VALBENAZINE
     Indication: DYSKINESIA
     Dates: start: 2019
  5. INGREZZA [Suspect]
     Active Substance: VALBENAZINE
  6. INGREZZA [Suspect]
     Active Substance: VALBENAZINE

REACTIONS (6)
  - Sedation [Recovered/Resolved]
  - Fall [Recovered/Resolved]
  - Therapeutic product effect decreased [None]
  - Tardive dyskinesia [Unknown]
  - Intentional product use issue [Unknown]
  - Overdose [Unknown]
